FAERS Safety Report 5285458-0 (Version None)
Quarter: 2007Q1

REPORT INFORMATION
  Report Type: 
  Country: None (occurrence: None)
  Receive Date: 20070328
  Receipt Date: 20070321
  Transmission Date: 20070707
  Serious: Yes (Hospitalization)
  Sender: FDA-Public Use
  Company Number: 238635

PATIENT
  Age: 71 Year
  Sex: Male
  Weight: 82.5 kg

DRUGS (17)
  1. BEVACIZUMAB(BEVACIZUMAB) PWDR + SOLVENT,INFUSION SOLN, 100MG [Suspect]
     Indication: NON-SMALL CELL LUNG CANCER
     Dosage: 10 MG/KG, DAYS 1+15, INTRAVENOUS
     Route: 042
     Dates: start: 20070109
  2. ERLOTINIB(ERLOTINIB) TABLET, 100MG [Suspect]
     Indication: NON-SMALL CELL LUNG CANCER
     Dosage: 100 MG, ORAL
     Route: 048
     Dates: start: 20070110
  3. PEMETREXED(PEMETREXED) [Suspect]
     Indication: NON-SMALL CELL LUNG CANCER
     Dosage: 500 MG/M2, DAYS 1+15, INTRAVENOUS
     Route: 042
     Dates: start: 20070109
  4. LIPITOR [Concomitant]
  5. FLOMAX [Concomitant]
  6. ENALAPRIL MALEATE [Concomitant]
  7. ACTOS [Concomitant]
  8. CLARITIN [Concomitant]
  9. ATENOLOL [Concomitant]
  10. WELLBUTRIN [Concomitant]
  11. ACETAMINOPHEN [Concomitant]
  12. DEXAMETHASONE TAB [Concomitant]
  13. FOLIC ACID [Concomitant]
  14. VITAMIN B12 [Concomitant]
  15. COMPAZINE [Concomitant]
  16. CLEOCIN LOTION (CLINDAMYCIN PHOSPHATE) [Concomitant]
  17. ARANESP [Concomitant]

REACTIONS (3)
  - CYSTITIS [None]
  - HAEMATURIA [None]
  - HAEMORRHAGE [None]
